FAERS Safety Report 14251822 (Version 4)
Quarter: 2018Q3

REPORT INFORMATION
  Report Type: Spontaneous
  Country: US (occurrence: US)
  Receive Date: 20171205
  Receipt Date: 20180727
  Transmission Date: 20181010
  Serious: Yes (Death, Life-Threatening, Other)
  Sender: FDA-Public Use
  Company Number: US-PFIZER INC-2017517952

PATIENT
  Age: 90 Year
  Sex: Female

DRUGS (3)
  1. RIVAROXABAN [Interacting]
     Active Substance: RIVAROXABAN
     Indication: ANTICOAGULANT THERAPY
     Dosage: 20 MG, UNK
  2. COUMADIN [Interacting]
     Active Substance: WARFARIN SODIUM
     Indication: ANTICOAGULANT THERAPY
     Dosage: UNK
  3. LEVOFLOXACIN. [Suspect]
     Active Substance: LEVOFLOXACIN
     Indication: PNEUMONIA
     Dosage: UNK

REACTIONS (4)
  - Spinal cord compression [Fatal]
  - Spinal cord haematoma [Fatal]
  - International normalised ratio increased [Fatal]
  - Drug interaction [Fatal]
